FAERS Safety Report 5267387-1 (Version None)
Quarter: 2007Q1

REPORT INFORMATION
  Report Type: 
  Country: None (occurrence: None)
  Receive Date: 20070316
  Receipt Date: 20070302
  Transmission Date: 20070707
  Serious: Yes (Other)
  Sender: FDA-Public Use
  Company Number: JP-ROCHE-469306

PATIENT
  Age: 1 Day
  Sex: Male
  Weight: 3.8 kg

DRUGS (1)
  1. TAMIFLU [Suspect]
     Indication: INFLUENZA
     Route: 064

REACTIONS (2)
  - ANOPHTHALMOS [None]
  - PREGNANCY [None]
